FAERS Safety Report 12608002 (Version 3)
Quarter: 2016Q3

REPORT INFORMATION
  Report Type: Spontaneous
  Country: CN (occurrence: CN)
  Receive Date: 20160729
  Receipt Date: 20160915
  Transmission Date: 20161109
  Serious: Yes (Other)
  Sender: FDA-Public Use
  Company Number: CN-JNJFOC-20160721229

PATIENT
  Age: 40 Year
  Sex: Female

DRUGS (1)
  1. TOPAMAX [Suspect]
     Active Substance: TOPIRAMATE
     Indication: EPILEPSY
     Dosage: FIRST WEEK-2 TAB, QD (IN EVENING); SECOND WEEK- 2 TAB, BID, THIRD WEEK-2 TAB-MORNING AND 3 TAB-EVE
     Route: 065
     Dates: end: 20160724

REACTIONS (7)
  - Epilepsy [Recovered/Resolved]
  - Asthenia [Recovered/Resolved]
  - Tic [Recovered/Resolved]
  - Drug ineffective [Unknown]
  - Mental impairment [Recovered/Resolved]
  - Hypoaesthesia [Recovered/Resolved]
  - Fear [Recovered/Resolved]

NARRATIVE: CASE EVENT DATE: 201607
